FAERS Safety Report 13098748 (Version 1)
Quarter: 2017Q1

REPORT INFORMATION
  Report Type: Spontaneous
  Country: NL (occurrence: NL)
  Receive Date: 20170109
  Receipt Date: 20170109
  Transmission Date: 20170428
  Serious: Yes (Other)
  Sender: FDA-Public Use
  Company Number: NL-BRISTOL-MYERS SQUIBB COMPANY-BMS-2016-112504

PATIENT
  Age: 9 Year
  Sex: Female

DRUGS (4)
  1. HYDROXYUREA. [Suspect]
     Active Substance: HYDROXYUREA
     Indication: PRODUCT USED FOR UNKNOWN INDICATION
     Dosage: 25 MG/KG, QD
     Route: 065
  2. HYDROXYUREA. [Suspect]
     Active Substance: HYDROXYUREA
     Indication: PRODUCT USED FOR UNKNOWN INDICATION
     Dosage: 14 MG/KG, QD
     Route: 065
  3. HYDROXYUREA. [Suspect]
     Active Substance: HYDROXYUREA
     Indication: PRODUCT USED FOR UNKNOWN INDICATION
     Dosage: 19 MG/KG, QD
     Route: 065
  4. HYDROXYUREA. [Suspect]
     Active Substance: HYDROXYUREA
     Indication: HAEMOGLOBIN ABNORMAL
     Dosage: 10 MG/KG, QD
     Route: 065

REACTIONS (10)
  - Pneumonia [Unknown]
  - Aplasia [Unknown]
  - Packed red blood cell transfusion [Unknown]
  - Cholelithiasis [Unknown]
  - Drug administered to patient of inappropriate age [Unknown]
  - Cytopenia [Unknown]
  - Product use issue [Unknown]
  - Cholecystectomy [Unknown]
  - Parvovirus B19 infection [Unknown]
  - Abdominal discomfort [Unknown]
